FAERS Safety Report 22727909 (Version 14)
Quarter: 2024Q2

REPORT INFORMATION
  Report Type: Report from Study
  Country: BE (occurrence: BE)
  Receive Date: 20230720
  Receipt Date: 20240430
  Transmission Date: 20240716
  Serious: Yes (Hospitalization, Other)
  Sender: FDA-Public Use
  Company Number: BE-SA-SAC20230626000718

PATIENT

DRUGS (86)
  1. DEXAMETHASONE [Suspect]
     Active Substance: DEXAMETHASONE
     Indication: Plasma cell myeloma
     Dosage: 20 MG, QW
     Route: 065
     Dates: start: 20230215, end: 20230314
  2. DEXAMETHASONE [Suspect]
     Active Substance: DEXAMETHASONE
     Indication: Plasma cell myeloma refractory
     Dosage: 40 MG, QW
     Route: 065
     Dates: start: 20221221, end: 20230116
  3. DEXAMETHASONE [Suspect]
     Active Substance: DEXAMETHASONE
     Dosage: 40 MG, QW
     Route: 065
     Dates: start: 20221122, end: 20221220
  4. DEXAMETHASONE [Suspect]
     Active Substance: DEXAMETHASONE
     Dosage: 40 MG, QW
     Route: 065
     Dates: start: 20221026, end: 20221121
  5. DEXAMETHASONE [Suspect]
     Active Substance: DEXAMETHASONE
     Dosage: 20 MG, QW
     Route: 065
     Dates: start: 20230117, end: 20230130
  6. DEXAMETHASONE [Suspect]
     Active Substance: DEXAMETHASONE
     Dosage: 10 MG, QW
     Route: 065
     Dates: start: 20230607, end: 20230620
  7. DEXAMETHASONE [Suspect]
     Active Substance: DEXAMETHASONE
     Dosage: UNK
     Route: 065
     Dates: start: 20221025
  8. DEXAMETHASONE [Suspect]
     Active Substance: DEXAMETHASONE
     Dosage: 10 MG, QW
     Route: 065
     Dates: start: 20230510, end: 20230606
  9. DEXAMETHASONE [Suspect]
     Active Substance: DEXAMETHASONE
     Dosage: 20 MG, QW
     Route: 065
     Dates: start: 20230315, end: 20230410
  10. DEXAMETHASONE [Suspect]
     Active Substance: DEXAMETHASONE
     Dosage: 40 MG, QW
     Route: 065
     Dates: start: 20221116, end: 20221121
  11. DEXAMETHASONE [Suspect]
     Active Substance: DEXAMETHASONE
     Dosage: 40 MG, QW
     Route: 065
     Dates: start: 20221026, end: 20221107
  12. DEXAMETHASONE [Suspect]
     Active Substance: DEXAMETHASONE
     Dosage: 40 MG, QW
     Route: 065
     Dates: start: 20221025, end: 20221108
  13. POMALIDOMIDE [Suspect]
     Active Substance: POMALIDOMIDE
     Indication: Plasma cell myeloma
     Dosage: 3 MG, QD
     Route: 065
     Dates: start: 20230117, end: 20230130
  14. POMALIDOMIDE [Suspect]
     Active Substance: POMALIDOMIDE
     Indication: Plasma cell myeloma refractory
     Dosage: 3 MG, QD
     Route: 065
     Dates: start: 20230215, end: 20230307
  15. POMALIDOMIDE [Suspect]
     Active Substance: POMALIDOMIDE
     Dosage: 3 MG, QD
     Route: 065
     Dates: start: 20230315, end: 20230404
  16. POMALIDOMIDE [Suspect]
     Active Substance: POMALIDOMIDE
     Dosage: 3 MG, QD
     Route: 065
     Dates: start: 20230607, end: 20230620
  17. POMALIDOMIDE [Suspect]
     Active Substance: POMALIDOMIDE
     Dosage: 3 MG, QD
     Route: 065
     Dates: start: 20230511, end: 20230531
  18. POMALIDOMIDE [Suspect]
     Active Substance: POMALIDOMIDE
     Dosage: 4 MG, QD
     Route: 065
     Dates: start: 20221026, end: 20221115
  19. POMALIDOMIDE [Suspect]
     Active Substance: POMALIDOMIDE
     Dosage: 4 MG, QD
     Route: 065
     Dates: start: 20221122, end: 20221212
  20. POMALIDOMIDE [Suspect]
     Active Substance: POMALIDOMIDE
     Dosage: 3 MG, QD
     Route: 065
     Dates: start: 20221221, end: 20230110
  21. POMALIDOMIDE [Suspect]
     Active Substance: POMALIDOMIDE
     Dosage: UNK
     Route: 065
     Dates: start: 20221025
  22. POMALIDOMIDE [Suspect]
     Active Substance: POMALIDOMIDE
     Dosage: UNK
     Route: 065
  23. POMALIDOMIDE [Suspect]
     Active Substance: POMALIDOMIDE
     Dosage: 4 MG, QD
     Route: 065
     Dates: start: 20221026, end: 20221107
  24. POMALIDOMIDE [Suspect]
     Active Substance: POMALIDOMIDE
     Dosage: 4 MG, QD
     Route: 065
     Dates: start: 20221025, end: 20221108
  25. POMALIDOMIDE [Suspect]
     Active Substance: POMALIDOMIDE
     Dosage: 3 MG, QD
     Route: 065
     Dates: start: 20231108, end: 20231128
  26. POMALIDOMIDE [Suspect]
     Active Substance: POMALIDOMIDE
     Dosage: 3 MG, QD
     Route: 065
     Dates: start: 20230913, end: 20231003
  27. POMALIDOMIDE [Suspect]
     Active Substance: POMALIDOMIDE
     Dosage: 3 MG, QD
     Route: 065
     Dates: start: 20230718, end: 20230807
  28. POMALIDOMIDE [Suspect]
     Active Substance: POMALIDOMIDE
     Dosage: 3 MG, QD
     Route: 065
     Dates: start: 20231011, end: 20231031
  29. POMALIDOMIDE [Suspect]
     Active Substance: POMALIDOMIDE
     Dosage: 3 MG, QD
     Route: 065
     Dates: start: 20230818, end: 20230907
  30. POMALIDOMIDE [Suspect]
     Active Substance: POMALIDOMIDE
     Dosage: 3 MG, QD
     Route: 065
     Dates: start: 20231202, end: 20231226
  31. POMALIDOMIDE [Suspect]
     Active Substance: POMALIDOMIDE
     Dosage: 3 MG, QD
     Route: 065
     Dates: start: 20211221, end: 20230110
  32. POMALIDOMIDE [Suspect]
     Active Substance: POMALIDOMIDE
     Dosage: 3 MG, QD
     Route: 065
     Dates: start: 20240104, end: 20240124
  33. POMALIDOMIDE [Suspect]
     Active Substance: POMALIDOMIDE
     Dosage: 3 MG, QD
     Route: 065
     Dates: start: 20240228
  34. POMALIDOMIDE [Suspect]
     Active Substance: POMALIDOMIDE
     Dosage: 2 MG, QD
     Route: 065
     Dates: start: 20240228
  35. ISATUXIMAB [Suspect]
     Active Substance: ISATUXIMAB
     Indication: Plasma cell myeloma refractory
     Dosage: 900 MG, BIW
     Route: 065
     Dates: start: 20230215, end: 20230307
  36. ISATUXIMAB [Suspect]
     Active Substance: ISATUXIMAB
     Indication: Plasma cell myeloma
     Dosage: 940 MG, BIW
     Route: 065
     Dates: start: 20230117, end: 20230130
  37. ISATUXIMAB [Suspect]
     Active Substance: ISATUXIMAB
     Dosage: 1000 MG, BIW
     Route: 065
     Dates: start: 20230607, end: 20230620
  38. ISATUXIMAB [Suspect]
     Active Substance: ISATUXIMAB
     Dosage: 940 MG, BIW
     Route: 065
     Dates: start: 20221221, end: 20230110
  39. ISATUXIMAB [Suspect]
     Active Substance: ISATUXIMAB
     Dosage: 950 MG, BIW
     Route: 065
     Dates: start: 20230411, end: 20230502
  40. ISATUXIMAB [Suspect]
     Active Substance: ISATUXIMAB
     Dosage: 920 MG, BIW
     Route: 065
     Dates: start: 20221122, end: 20221206
  41. ISATUXIMAB [Suspect]
     Active Substance: ISATUXIMAB
     Dosage: 950 MG, BIW
     Route: 065
     Dates: start: 20230510, end: 20230531
  42. ISATUXIMAB [Suspect]
     Active Substance: ISATUXIMAB
     Dosage: 940 MG, QW
     Route: 065
     Dates: start: 20221026, end: 20221122
  43. ISATUXIMAB [Suspect]
     Active Substance: ISATUXIMAB
     Dosage: UNK
     Route: 065
     Dates: start: 20221025, end: 20221108
  44. ISATUXIMAB [Suspect]
     Active Substance: ISATUXIMAB
     Dosage: 930 MG, BIW
     Route: 065
     Dates: start: 20221207, end: 20221213
  45. ISATUXIMAB [Suspect]
     Active Substance: ISATUXIMAB
     Dosage: 940 MG, BIW
     Route: 065
     Dates: start: 20230315, end: 20230404
  46. ISATUXIMAB [Suspect]
     Active Substance: ISATUXIMAB
     Dosage: 940 MG, BIW
     Route: 065
     Dates: start: 20221026, end: 20221107
  47. ISATUXIMAB [Suspect]
     Active Substance: ISATUXIMAB
     Dosage: 940 MG, BIW
     Route: 065
     Dates: start: 20221116, end: 20221121
  48. ISATUXIMAB [Suspect]
     Active Substance: ISATUXIMAB
     Dosage: 900 MG, BIW
     Route: 065
     Dates: start: 20230718, end: 20230807
  49. ISATUXIMAB [Suspect]
     Active Substance: ISATUXIMAB
     Dosage: 900 MG, BIW
     Route: 065
     Dates: start: 20230117, end: 20230130
  50. ISATUXIMAB [Suspect]
     Active Substance: ISATUXIMAB
     Dosage: 940 MG, QW
     Route: 065
     Dates: start: 20221025, end: 20221108
  51. ISATUXIMAB [Suspect]
     Active Substance: ISATUXIMAB
     Dosage: 950 MG, BIW
     Route: 065
     Dates: start: 20230913, end: 20231003
  52. ISATUXIMAB [Suspect]
     Active Substance: ISATUXIMAB
     Dosage: 940 MG, BIW
     Route: 065
     Dates: start: 20230818, end: 20230907
  53. ISATUXIMAB [Suspect]
     Active Substance: ISATUXIMAB
     Dosage: 900 MG, QM
     Route: 065
     Dates: start: 20231011, end: 20231031
  54. ISATUXIMAB [Suspect]
     Active Substance: ISATUXIMAB
     Dosage: 900 MG, QM
     Route: 065
     Dates: start: 20231106
  55. ISATUXIMAB [Suspect]
     Active Substance: ISATUXIMAB
     Dosage: 900 MG, QM
     Route: 065
     Dates: start: 20231108, end: 20231128
  56. ISATUXIMAB [Suspect]
     Active Substance: ISATUXIMAB
     Dosage: 920 MG, QM
     Route: 065
     Dates: start: 20231202, end: 20231229
  57. ISATUXIMAB [Suspect]
     Active Substance: ISATUXIMAB
     Dosage: 900 MG, QD
     Route: 065
     Dates: start: 20240202, end: 20240222
  58. ISATUXIMAB [Suspect]
     Active Substance: ISATUXIMAB
     Dosage: 900 MG, QM
     Route: 065
     Dates: start: 20240228
  59. ISATUXIMAB [Suspect]
     Active Substance: ISATUXIMAB
     Dosage: 910 MG, QM
     Route: 065
     Dates: start: 20240104, end: 20240124
  60. BACTRIM [Concomitant]
     Active Substance: SULFAMETHOXAZOLE\TRIMETHOPRIM
     Indication: Prophylaxis
     Dosage: UNK
     Route: 065
     Dates: start: 20211213, end: 20221122
  61. ENOXAPARIN SODIUM [Concomitant]
     Active Substance: ENOXAPARIN SODIUM
     Indication: Prophylaxis
     Dosage: UNK
     Route: 065
     Dates: start: 20230131, end: 20230207
  62. AMIODARONE [Concomitant]
     Active Substance: AMIODARONE
     Indication: Adverse event
     Dosage: UNK
     Route: 065
     Dates: start: 20230201, end: 20230630
  63. AMIODARONE [Concomitant]
     Active Substance: AMIODARONE
     Dosage: UNK
     Route: 065
     Dates: start: 20230630
  64. FOLIC ACID [Concomitant]
     Active Substance: FOLIC ACID
     Indication: Prophylaxis
     Dosage: UNK
     Route: 065
     Dates: start: 20210713, end: 20221221
  65. AMOXICILLIN [Concomitant]
     Active Substance: AMOXICILLIN
     Indication: Adverse event
     Dosage: UNK
     Route: 065
     Dates: start: 20230131, end: 20230206
  66. PANTOPRAZOLE [Concomitant]
     Active Substance: PANTOPRAZOLE
     Indication: Prophylaxis
     Dosage: UNK
     Route: 065
     Dates: start: 20210713
  67. LEVOCETIRIZINE DIHYDROCHLORIDE [Concomitant]
     Active Substance: LEVOCETIRIZINE DIHYDROCHLORIDE
     Indication: Prophylaxis
     Dosage: UNK,STUDY PRE-MEDICATION X FREQUENCY: EVERY CYCLE
     Route: 065
     Dates: start: 20221221
  68. ENOXAPARIN SODIUM [Concomitant]
     Active Substance: ENOXAPARIN SODIUM
     Indication: Prophylaxis
     Dosage: UNK
     Route: 065
     Dates: start: 20221018, end: 20230130
  69. FOSFOMYCIN [Concomitant]
     Active Substance: FOSFOMYCIN
     Indication: Prophylaxis
     Dosage: UNK
     Route: 065
     Dates: start: 20230620, end: 20230620
  70. ATORVASTATIN [Concomitant]
     Active Substance: ATORVASTATIN
     Indication: Prophylaxis
     Dosage: UNK
     Route: 065
     Dates: start: 20220516
  71. DAFALGAN [Concomitant]
     Active Substance: ACETAMINOPHEN
     Indication: Prophylaxis
     Dosage: UNK
     Route: 065
     Dates: start: 20221221
  72. ACYCLOVIR [Concomitant]
     Active Substance: ACYCLOVIR
     Indication: Prophylaxis
     Dosage: UNK
     Route: 065
     Dates: start: 20210713
  73. FILGRASTIM [Concomitant]
     Active Substance: FILGRASTIM
     Indication: Adverse event
     Dosage: UNK
     Route: 065
     Dates: start: 20230215, end: 20230217
  74. FILGRASTIM [Concomitant]
     Active Substance: FILGRASTIM
     Indication: Prophylaxis
     Dosage: UNK
     Route: 065
     Dates: start: 20230117, end: 20230119
  75. FILGRASTIM [Concomitant]
     Active Substance: FILGRASTIM
     Indication: Adverse event
     Dosage: UNK
     Route: 065
     Dates: start: 20221221, end: 20221223
  76. FILGRASTIM [Concomitant]
     Active Substance: FILGRASTIM
     Dosage: UNK
     Route: 065
  77. FILGRASTIM [Concomitant]
     Active Substance: FILGRASTIM
     Dosage: UNK
     Route: 065
     Dates: start: 20221109
  78. CALCIUM [Concomitant]
     Active Substance: CALCIUM
     Indication: Prophylaxis
     Dosage: UNK
     Route: 065
     Dates: start: 20221122
  79. METFORMIN [Concomitant]
     Active Substance: METFORMIN HYDROCHLORIDE
     Indication: Type 2 diabetes mellitus
     Dosage: UNK
     Route: 065
     Dates: start: 20210713, end: 20230315
  80. OSELTAMIVIR [Concomitant]
     Active Substance: OSELTAMIVIR
     Indication: Adverse event
     Dosage: UNK
     Route: 065
     Dates: start: 20230201, end: 20230208
  81. CHOLECALCIFEROL [Concomitant]
     Active Substance: CHOLECALCIFEROL
     Indication: Prophylaxis
     Dosage: UNK
     Route: 065
     Dates: start: 20221121
  82. ZOMETA [Concomitant]
     Active Substance: ZOLEDRONIC ACID
     Indication: Prophylaxis
     Dosage: UNK (STUDY PRE-MEDICATION? X FREQUENCY: EVERY CYCLE)
     Route: 065
     Dates: start: 20221221
  83. INSULIN ASPART [Concomitant]
     Active Substance: INSULIN ASPART
     Indication: Type 2 diabetes mellitus
     Dosage: UNK
     Route: 065
     Dates: start: 20230315
  84. INSULIN NOS [Concomitant]
     Active Substance: INSULIN NOS
     Indication: Type 2 diabetes mellitus
     Dosage: UNK
     Route: 065
     Dates: start: 20221122, end: 20230315
  85. ELIQUIS [Concomitant]
     Active Substance: APIXABAN
     Indication: Prophylaxis
     Dosage: UNK
     Route: 065
     Dates: start: 20230208
  86. TAMSULOSIN [Concomitant]
     Active Substance: TAMSULOSIN
     Indication: Product used for unknown indication
     Dosage: UNK STSRT DATE (07-JUL-2023)
     Route: 065
     Dates: start: 20230707

REACTIONS (5)
  - Interstitial lung disease [Recovered/Resolved]
  - Pneumonia [Recovered/Resolved]
  - Infection [Recovered/Resolved]
  - Neutrophil count decreased [Recovering/Resolving]
  - Pollakiuria [Recovered/Resolved]

NARRATIVE: CASE EVENT DATE: 20230620
